FAERS Safety Report 18306817 (Version 1)
Quarter: 2020Q3

REPORT INFORMATION
  Report Type: Spontaneous
  Country: US (occurrence: US)
  Receive Date: 20200923
  Receipt Date: 20200923
  Transmission Date: 20201103
  Serious: Yes (Hospitalization)
  Sender: FDA-Public Use
  Company Number: None

PATIENT
  Age: 83 Year
  Sex: Male
  Weight: 63 kg

DRUGS (2)
  1. GLOBULIN, IMMUNE (GLOBULIN, IMMUNE (IV) (SORBITOL) 10% INJ) [Suspect]
     Active Substance: HUMAN IMMUNOGLOBULIN G
     Indication: HYPOGAMMAGLOBULINAEMIA
     Route: 042
     Dates: start: 20120203, end: 20200506
  2. GLOBULIN, IMMUNE (GLOBULIN, IMMUNE (IV) (SORBITOL) 10% INJ) [Concomitant]
     Active Substance: HUMAN IMMUNOGLOBULIN G

REACTIONS (7)
  - Encephalopathy [None]
  - Confusional state [None]
  - Pneumonia [None]
  - Acute kidney injury [None]
  - Fall [None]
  - Sepsis [None]
  - Respiratory failure [None]

NARRATIVE: CASE EVENT DATE: 20200506
